FAERS Safety Report 4996118-5 (Version None)
Quarter: 2006Q2

REPORT INFORMATION
  Report Type: 
  Country: None (occurrence: None)
  Receive Date: 20060504
  Receipt Date: 20060425
  Transmission Date: 20061013
  Serious: Yes (Other)
  Sender: FDA-Public Use
  Company Number: 2006056143

PATIENT
  Age: 62 Year
  Sex: Female
  Weight: 74 kg

DRUGS (1)
  1. SERTRALINE [Suspect]
     Indication: DEPRESSION
     Dosage: (50 MG), ORAL
     Route: 048
     Dates: start: 20060307, end: 20060310

REACTIONS (5)
  - ANOREXIA [None]
  - SWELLING FACE [None]
  - SWOLLEN TONGUE [None]
  - SYNCOPE [None]
  - VOMITING [None]
